FAERS Safety Report 25356927 (Version 2)
Quarter: 2025Q4

REPORT INFORMATION
  Report Type: Report from Study
  Country: US (occurrence: US)
  Receive Date: 20250526
  Receipt Date: 20251112
  Transmission Date: 20260118
  Serious: Yes (Hospitalization, Other)
  Sender: ABBVIE
  Company Number: US-ABBVIE-6132445

PATIENT
  Age: 47 Year
  Sex: Female

DRUGS (4)
  1. SKYRIZI [Suspect]
     Active Substance: RISANKIZUMAB-RZAA
     Indication: Crohn^s disease
     Route: 058
  2. TRAMADOL [Concomitant]
     Active Substance: TRAMADOL
     Indication: Product used for unknown indication
  3. ATIVAN [Concomitant]
     Active Substance: LORAZEPAM
     Indication: Product used for unknown indication
  4. SKYRIZI [Suspect]
     Active Substance: RISANKIZUMAB-RZAA
     Indication: Crohn^s disease
     Route: 042
     Dates: end: 20241220

REACTIONS (15)
  - Gastric operation [Unknown]
  - Unevaluable event [Unknown]
  - Hospitalisation [Recovered/Resolved]
  - Unevaluable event [Not Recovered/Not Resolved]
  - Scar [Unknown]
  - Emotional disorder [Unknown]
  - Brain fog [Unknown]
  - COVID-19 [Unknown]
  - Crohn^s disease [Not Recovered/Not Resolved]
  - Mental status changes [Unknown]
  - Bacteraemia [Unknown]
  - Malaise [Unknown]
  - Vomiting [Not Recovered/Not Resolved]
  - Pyrexia [Unknown]
  - Hospitalisation [Recovering/Resolving]

NARRATIVE: CASE EVENT DATE: 20220101
